FAERS Safety Report 4882537-4 (Version None)
Quarter: 2005Q4

REPORT INFORMATION
  Report Type: 
  Country: None (occurrence: None)
  Receive Date: 20051201
  Receipt Date: 20050924
  Transmission Date: 20060501
  Serious: No
  Sender: FDA-Public Use
  Company Number: 2005PV002756

PATIENT
  Age: 68 Year
  Sex: Female
  Weight: 120.6568 kg

DRUGS (10)
  1. BYETTA [Suspect]
     Indication: DIABETES MELLITUS NON-INSULIN-DEPENDENT
     Dosage: 5 MCG; BID; SC
     Route: 058
     Dates: start: 20050922
  2. LANTUS [Concomitant]
  3. CAPTOPRIL [Concomitant]
  4. PRANDIN [Concomitant]
  5. LIPITOR [Concomitant]
  6. NEXIUM [Concomitant]
  7. ATENOLOL [Concomitant]
  8. ASPIRIN [Concomitant]
  9. FUROSEMIDE [Concomitant]
  10. NORVASC [Concomitant]

REACTIONS (4)
  - BLOOD GLUCOSE DECREASED [None]
  - FEAR [None]
  - HYPERHIDROSIS [None]
  - VISUAL DISTURBANCE [None]
